APPROVED DRUG PRODUCT: LEXIVA
Active Ingredient: FOSAMPRENAVIR CALCIUM
Strength: EQ 50MG BASE/ML
Dosage Form/Route: SUSPENSION;ORAL
Application: N022116 | Product #001
Applicant: VIIV HEALTHCARE CO
Approved: Jun 14, 2007 | RLD: Yes | RS: No | Type: DISCN